FAERS Safety Report 8698630 (Version 2)
Quarter: 2012Q4

REPORT INFORMATION
  Report Type: 
  Country: US (occurrence: US)
  Receive Date: 20120802
  Receipt Date: 20121108
  Transmission Date: 20130627
  Serious: Yes (Hospitalization, Other)
  Sender: FDA-Public Use
  Company Number: US-PFIZER INC-2012184349

PATIENT
  Age: 50 Year
  Sex: Female

DRUGS (13)
  1. CHANTIX [Suspect]
     Indication: SMOKING CESSATION THERAPY
     Dosage: 1 mg, UNK
     Dates: start: 20070417, end: 20090810
  2. HYDROXYZINE HYDROCHLORIDE [Concomitant]
     Indication: ANXIETY
     Dosage: UNK
     Dates: start: 20070205, end: 20091002
  3. RANITIDINE [Concomitant]
     Indication: ULCER
     Dosage: UNK
     Dates: start: 20070206, end: 20090828
  4. GABAPENTIN [Concomitant]
     Indication: PAIN MANAGEMENT
     Dosage: UNK
     Dates: start: 20070309, end: 20091028
  5. PREDNISONE [Concomitant]
     Indication: MULTIPLE ALLERGIES
     Dosage: UNK
     Dates: start: 20070417, end: 20091031
  6. NEXIUM [Concomitant]
     Indication: GERD
     Dosage: UNK
     Dates: start: 20070829, end: 20091128
  7. CRESTOR [Concomitant]
     Indication: CHOLESTEROL
     Dosage: UNK
     Dates: start: 20080716, end: 20090929
  8. NITROGLYCERIN [Concomitant]
     Indication: CHEST PAIN
     Dosage: UNK
     Dates: start: 20090317
  9. CHLORTHALIDONE [Concomitant]
     Indication: EDEMA
     Dosage: UNK
     Dates: start: 20090320, end: 20091212
  10. EPIPEN [Concomitant]
     Indication: ALLERGIC REACTION
     Dosage: UNK
     Dates: start: 20090424
  11. DILTIAZEM [Concomitant]
     Indication: BLOOD PRESSURE HIGH
     Dosage: UNK
     Dates: start: 20090517, end: 20091023
  12. XYZAL [Concomitant]
     Indication: MULTIPLE ALLERGIES
     Dosage: UNK
     Dates: start: 20090709, end: 20090928
  13. CLONAZEPAM [Concomitant]
     Indication: PANIC DISORDER
     Dosage: UNK
     Dates: start: 20090810, end: 20090910

REACTIONS (6)
  - Intentional overdose [Recovered/Resolved]
  - Suicide attempt [Recovered/Resolved]
  - Homicidal ideation [Unknown]
  - Anxiety [Not Recovered/Not Resolved]
  - Depression [Not Recovered/Not Resolved]
  - Anger [Recovered/Resolved]
